FAERS Safety Report 5901710-7 (Version None)
Quarter: 2008Q3

REPORT INFORMATION
  Report Type: 
  Country: None (occurrence: None)
  Receive Date: 20080929
  Receipt Date: 20080919
  Transmission Date: 20090109
  Serious: Yes (Other)
  Sender: FDA-Public Use
  Company Number: B0534786A

PATIENT
  Age: 58 Year
  Sex: Male
  Weight: 64 kg

DRUGS (3)
  1. AVODART [Suspect]
     Dosage: .5MG PER DAY
     Route: 048
     Dates: start: 20080205, end: 20080607
  2. ALFUZOSINE [Concomitant]
     Route: 048
     Dates: start: 20080711
  3. PROSCAR [Concomitant]

REACTIONS (3)
  - ASTHMATIC CRISIS [None]
  - DRY EYE [None]
  - PRURITUS [None]
